FAERS Safety Report 5978729-3 (Version None)
Quarter: 2008Q4

REPORT INFORMATION
  Report Type: 
  Country: None (occurrence: None)
  Receive Date: 20081204
  Receipt Date: 20081128
  Transmission Date: 20090506
  Serious: Yes (Hospitalization)
  Sender: FDA-Public Use
  Company Number: CA-AVENTIS-200821135GDDC

PATIENT
  Age: 26 Year
  Sex: Male

DRUGS (3)
  1. LANTUS [Suspect]
     Route: 058
     Dates: start: 20081121
  2. HUMALOG [Concomitant]
     Dosage: DOSE: SLIDING SCALE
     Route: 058
  3. UNKNOWN DRUG [Concomitant]

REACTIONS (4)
  - GAIT DISTURBANCE [None]
  - PANIC ATTACK [None]
  - SOMATISATION DISORDER [None]
  - SPEECH DISORDER [None]
